FAERS Safety Report 20593293 (Version 2)
Quarter: 2022Q2

REPORT INFORMATION
  Report Type: Spontaneous
  Country: AU (occurrence: AU)
  Receive Date: 20220315
  Receipt Date: 20220509
  Transmission Date: 20220720
  Serious: Yes (Hospitalization, Other)
  Sender: FDA-Public Use
  Company Number: AU-LUPIN PHARMACEUTICALS INC.-2022-03324

PATIENT
  Age: 51 Year
  Sex: Female
  Weight: 57 kg

DRUGS (9)
  1. POTASSIUM CHLORIDE [Interacting]
     Active Substance: POTASSIUM CHLORIDE
     Indication: Product used for unknown indication
     Dosage: 18000 MILLIGRAM (SUSTAINED-RELEASE TABLET; OVERDOSED 1 YEAR LATER WITH 100 X 600MG TABLETS (60000MG)
     Route: 048
  2. POTASSIUM CHLORIDE [Interacting]
     Active Substance: POTASSIUM CHLORIDE
     Dosage: 60000 MILLIGRAM (100X600MG TABLETS)
     Route: 048
  3. LEVOTHYROXINE [Interacting]
     Active Substance: LEVOTHYROXINE
     Indication: Product used for unknown indication
     Dosage: 1000 MICROGRAM
     Route: 048
  4. TRAMADOL HYDROCHLORIDE [Interacting]
     Active Substance: TRAMADOL HYDROCHLORIDE
     Indication: Product used for unknown indication
     Dosage: 750 MILLIGRAM
     Route: 048
  5. VENLAFAXINE [Interacting]
     Active Substance: VENLAFAXINE HYDROCHLORIDE
     Indication: Product used for unknown indication
     Dosage: 1200 MILLIGRAM
     Route: 048
  6. HYDROCHLOROTHIAZIDE [Interacting]
     Active Substance: HYDROCHLOROTHIAZIDE
     Indication: Product used for unknown indication
     Dosage: UNK (1ST PRESENTATION)
     Route: 048
  7. HYDROCHLOROTHIAZIDE [Interacting]
     Active Substance: HYDROCHLOROTHIAZIDE
     Dosage: UNK (2ND PRESENTATION)
     Route: 048
  8. AMILORIDE [Interacting]
     Active Substance: AMILORIDE
     Indication: Product used for unknown indication
     Dosage: UNK (1ST PRESENTATION)
     Route: 048
  9. AMILORIDE [Interacting]
     Active Substance: AMILORIDE
     Dosage: UNK (2ND PRESENTATION)
     Route: 048

REACTIONS (7)
  - Gastrointestinal disorder [Unknown]
  - Neuromyopathy [Unknown]
  - Arrhythmia [Unknown]
  - Hyperkalaemia [Unknown]
  - Drug interaction [Unknown]
  - Alcohol interaction [Unknown]
  - Overdose [Unknown]
